FAERS Safety Report 8932589 (Version 1)
Quarter: 2012Q4

REPORT INFORMATION
  Report Type: 
  Country: FR (occurrence: FR)
  Receive Date: 20121129
  Receipt Date: 20121129
  Transmission Date: 20130627
  Serious: Yes (Hospitalization)
  Sender: FDA-Public Use
  Company Number: PHHY2012FR107881

PATIENT
  Age: 89 Year
  Sex: Female

DRUGS (4)
  1. COTAREG [Suspect]
     Dosage: 1 DF, QD (160 mg val/ 25 mg HCT)
     Route: 048
     Dates: start: 20110706, end: 20110716
  2. PLAVIX [Concomitant]
  3. SERMION [Concomitant]
  4. SIMVASTATINE [Concomitant]

REACTIONS (5)
  - Hyponatraemia [Recovering/Resolving]
  - Hot flush [Unknown]
  - Malaise [Unknown]
  - Dizziness [Unknown]
  - Nausea [Unknown]
